FAERS Safety Report 5134274-9 (Version None)
Quarter: 2006Q4

REPORT INFORMATION
  Report Type: 
  Country: None (occurrence: None)
  Receive Date: 20061019
  Receipt Date: 20061002
  Transmission Date: 20070319
  Serious: Yes (Hospitalization)
  Sender: FDA-Public Use
  Company Number: BE200609002512

PATIENT
  Age: 64 Year
  Sex: Male

DRUGS (10)
  1. PEMETREXED (PEMETREXED UNKNOWN FORMULATION) UNKNOWN [Suspect]
     Indication: NON-SMALL CELL LUNG CANCER
     Dosage: SEE IMAGE
     Route: 042
     Dates: start: 20060717
  2. PEMETREXED (PEMETREXED UNKNOWN FORMULATION) UNKNOWN [Suspect]
     Indication: NON-SMALL CELL LUNG CANCER
     Dosage: SEE IMAGE
     Route: 042
     Dates: start: 20060814
  3. RADIATION (RADIATION) [Suspect]
     Indication: NON-SMALL CELL LUNG CANCER
     Dosage: 10 GY
     Dates: start: 20060717
  4. RADIATION (RADIATION) [Suspect]
     Indication: NON-SMALL CELL LUNG CANCER
     Dosage: 10 GY
     Dates: start: 20060816
  5. MIXTARD HUMAN 70/30 [Concomitant]
  6. GLUCOPHAGE [Concomitant]
  7. ZESTRIL [Concomitant]
  8. AGYRAX (BUPHENINE HYDROCHLORIDE, HYDROXYZINE  HYDROCHLORIDE, MECLOZINE [Concomitant]
  9. BISOPROLOL FUMARATE [Concomitant]
  10. SERETIDE  ALLEN + HANBURYS LTD  (FLUTICASOONE PROPIONATE, SALMETEROL) [Concomitant]

REACTIONS (2)
  - FEBRILE NEUTROPENIA [None]
  - PNEUMONIA [None]
